FAERS Safety Report 18471421 (Version 3)
Quarter: 2021Q1

REPORT INFORMATION
  Report Type: Spontaneous
  Country: US (occurrence: US)
  Receive Date: 20201105
  Receipt Date: 20210202
  Transmission Date: 20210419
  Serious: Yes (Other)
  Sender: FDA-Public Use
  Company Number: US-PURDUE-USA-2020-0161365

PATIENT
  Sex: Male

DRUGS (1)
  1. OXYCONTIN [Suspect]
     Active Substance: OXYCODONE HYDROCHLORIDE
     Indication: PRODUCT USED FOR UNKNOWN INDICATION
     Route: 048

REACTIONS (7)
  - Injury [Unknown]
  - Central nervous system injury [Unknown]
  - Gastric disorder [Unknown]
  - Dependence [Unknown]
  - Renal disorder [Unknown]
  - Learning disability [Unknown]
  - Thinking abnormal [Unknown]
